FAERS Safety Report 17808310 (Version 2)
Quarter: 2020Q4

REPORT INFORMATION
  Report Type: Spontaneous
  Country: US (occurrence: US)
  Receive Date: 20200520
  Receipt Date: 20201223
  Transmission Date: 20210113
  Serious: Yes (Death, Other)
  Sender: FDA-Public Use
  Company Number: US-PURDUE PHARMA-USA-2020-0153308

PATIENT
  Sex: Male
  Weight: 90 kg

DRUGS (1)
  1. OXYCONTIN [Suspect]
     Active Substance: OXYCODONE HYDROCHLORIDE
     Indication: PAIN
     Dosage: 160 MG, UNK
     Route: 048
     Dates: start: 1980

REACTIONS (3)
  - Cardiac operation [Unknown]
  - Death [Fatal]
  - Drug dependence [Unknown]

NARRATIVE: CASE EVENT DATE: 1980
